FAERS Safety Report 8361019-1 (Version None)
Quarter: 2012Q2

REPORT INFORMATION
  Report Type: 
  Country: None (occurrence: None)
  Receive Date: 20120515
  Receipt Date: 20120508
  Transmission Date: 20120825
  Serious: Yes (Death, Hospitalization)
  Sender: FDA-Public Use
  Company Number: TW-CELGENEUS-153-50794-12040042

PATIENT
  Sex: Male
  Weight: 90.9 kg

DRUGS (6)
  1. VIDAZA [Suspect]
     Indication: REFRACTORY ANAEMIA WITH AN EXCESS OF BLASTS
     Dosage: 165 MILLIGRAM
     Route: 058
     Dates: start: 20110725
  2. ZOLPIDEM [Concomitant]
     Indication: INSOMNIA
     Route: 048
     Dates: start: 20110819, end: 20120419
  3. VIDAZA [Suspect]
     Indication: MYELODYSPLASTIC SYNDROME
     Dosage: 157 MILLIGRAM
     Route: 065
     Dates: start: 20120319, end: 20120327
  4. TAMSULOSIN HCL [Concomitant]
     Indication: BENIGN PROSTATIC HYPERPLASIA
     Dosage: 1 TABLET
     Route: 048
     Dates: start: 20111230, end: 20120420
  5. ALPRAZOLAM [Concomitant]
     Indication: INSOMNIA
     Route: 048
     Dates: start: 20111125, end: 20120419
  6. FLUCONAZOLE [Concomitant]
     Indication: FUNGAL INFECTION
     Dosage: 12 CAPSULE
     Route: 048
     Dates: start: 20111122, end: 20120405

REACTIONS (7)
  - LEUKAEMIC INFILTRATION EXTRAMEDULLARY [None]
  - LIVER ABSCESS [None]
  - FUNGAL INFECTION [None]
  - SEPTIC SHOCK [None]
  - BONE MARROW FAILURE [None]
  - FEBRILE NEUTROPENIA [None]
  - RESPIRATORY FAILURE [None]
